FAERS Safety Report 8505655-8 (Version None)
Quarter: 2012Q3

REPORT INFORMATION
  Report Type: 
  Country: None (occurrence: None)
  Receive Date: 20120712
  Receipt Date: 20120705
  Transmission Date: 20120928
  Serious: Yes (Other)
  Sender: FDA-Public Use
  Company Number: JP-ELI_LILLY_AND_COMPANY-JP201207001230

PATIENT
  Age: 68 Year
  Sex: Female

DRUGS (1)
  1. EVISTA [Suspect]
     Dosage: UNK
     Route: 048
     Dates: start: 20120101

REACTIONS (1)
  - GASTRIC ULCER [None]
